FAERS Safety Report 17488030 (Version 2)
Quarter: 2020Q1

REPORT INFORMATION
  Report Type: Spontaneous
  Country: US (occurrence: US)
  Receive Date: 20200303
  Receipt Date: 20200331
  Transmission Date: 20200409
  Serious: No
  Sender: FDA-Public Use
  Company Number: US-PFIZER INC-2020093909

PATIENT
  Age: 83 Year
  Sex: Female

DRUGS (1)
  1. IBRANCE [Suspect]
     Active Substance: PALBOCICLIB
     Indication: BREAST CANCER FEMALE
     Dosage: 75 MG, UNK

REACTIONS (5)
  - Diarrhoea [Unknown]
  - Nasopharyngitis [Unknown]
  - Nutritional condition abnormal [Unknown]
  - Drug hypersensitivity [Unknown]
  - Asthenia [Not Recovered/Not Resolved]
